FAERS Safety Report 14471525 (Version 3)
Quarter: 2018Q1

REPORT INFORMATION
  Report Type: Spontaneous
  Country: AT (occurrence: AT)
  Receive Date: 20180131
  Receipt Date: 20180227
  Transmission Date: 20180509
  Serious: Yes (Hospitalization, Other)
  Sender: FDA-Public Use
  Company Number: AT-OTSUKA-2018_001792

PATIENT
  Age: 48 Year
  Sex: Female
  Weight: 74.7 kg

DRUGS (40)
  1. BRUFEN [Suspect]
     Active Substance: IBUPROFEN
     Dosage: 1000 MG, UNK
     Route: 065
     Dates: start: 20160120, end: 20160120
  2. BRUFEN [Suspect]
     Active Substance: IBUPROFEN
     Dosage: 400 MG, UNK
     Route: 065
     Dates: start: 20160217
  3. MEXALEN [Concomitant]
     Active Substance: ACETAMINOPHEN
     Dosage: 1000 MG, UNK
     Route: 065
     Dates: start: 20160215
  4. MIRTAZAPIN [Suspect]
     Active Substance: MIRTAZAPINE
     Indication: SLEEP DISORDER
     Dosage: 60 MG, UNK
     Route: 065
     Dates: start: 20160125, end: 20160202
  5. LYRICA [Concomitant]
     Active Substance: PREGABALIN
     Indication: PRODUCT USED FOR UNKNOWN INDICATION
     Dosage: 100 MG, UNK
     Route: 065
     Dates: start: 20160121
  6. TRAMAL RETARD [Concomitant]
     Active Substance: TRAMADOL
     Indication: PRODUCT USED FOR UNKNOWN INDICATION
     Dosage: 100 MG, UNK
     Route: 065
     Dates: start: 20160118
  7. TRAMAL RETARD [Concomitant]
     Active Substance: TRAMADOL
     Dosage: 50 MG, UNK
     Route: 065
     Dates: start: 20160119, end: 20160124
  8. LISINOPRIL. [Concomitant]
     Active Substance: LISINOPRIL
     Dosage: 10 MG, UNK
     Route: 065
     Dates: start: 20160213
  9. ABILIFY [Suspect]
     Active Substance: ARIPIPRAZOLE
     Indication: PRODUCT USED FOR UNKNOWN INDICATION
     Dosage: 5 MG, UNK
     Route: 065
     Dates: start: 20160122, end: 20160126
  10. BRUFEN [Suspect]
     Active Substance: IBUPROFEN
     Dosage: 600 MG, UNK
     Route: 065
     Dates: start: 20160215, end: 20160216
  11. MEXALEN [Concomitant]
     Active Substance: ACETAMINOPHEN
     Dosage: 1000 MG, UNK
     Route: 065
     Dates: start: 20160208, end: 20160212
  12. MEXALEN [Concomitant]
     Active Substance: ACETAMINOPHEN
     Dosage: 500 MG, UNK
     Route: 065
     Dates: start: 20160229
  13. MEXALEN [Concomitant]
     Active Substance: ACETAMINOPHEN
     Dosage: 350 MG, UNK
     Route: 065
     Dates: start: 20160217, end: 20160217
  14. MEXALEN [Concomitant]
     Active Substance: ACETAMINOPHEN
     Dosage: 500 MG, UNK
     Route: 065
     Dates: start: 20160129, end: 20160129
  15. LISINOPRIL. [Concomitant]
     Active Substance: LISINOPRIL
     Indication: PRODUCT USED FOR UNKNOWN INDICATION
     Dosage: 20 MG, UNK
     Route: 065
     Dates: start: 20160212
  16. MIRTAZAPIN [Suspect]
     Active Substance: MIRTAZAPINE
     Dosage: 30 MG, UNK
     Route: 065
     Dates: start: 201501
  17. HOVA DRAGEES [Concomitant]
     Dosage: 2 DF, UNK
     Route: 065
     Dates: start: 20160209, end: 20160212
  18. MEXALEN [Concomitant]
     Active Substance: ACETAMINOPHEN
     Indication: PRODUCT USED FOR UNKNOWN INDICATION
     Dosage: 500 MG, UNK
     Route: 065
     Dates: start: 20160202, end: 20160202
  19. PANTOPRAZOL [Concomitant]
     Active Substance: PANTOPRAZOLE SODIUM
     Indication: PRODUCT USED FOR UNKNOWN INDICATION
     Dosage: 20 MG, UNK
     Route: 065
     Dates: start: 20160120
  20. MAGNOSOLV [Concomitant]
     Indication: PRODUCT USED FOR UNKNOWN INDICATION
     Dosage: 1 DF, UNK
     Route: 065
     Dates: start: 20160127
  21. ABILIFY [Suspect]
     Active Substance: ARIPIPRAZOLE
     Dosage: 10 MG, UNK
     Route: 065
     Dates: start: 20160127
  22. MIRTAZAPIN [Suspect]
     Active Substance: MIRTAZAPINE
     Dosage: 45 MG, UNK
     Route: 065
     Dates: end: 20160124
  23. BRUFEN [Suspect]
     Active Substance: IBUPROFEN
     Indication: HEADACHE
     Dosage: 800 MG, UNK
     Route: 065
     Dates: start: 20160121, end: 20160214
  24. HOVA DRAGEES [Concomitant]
     Indication: PRODUCT USED FOR UNKNOWN INDICATION
     Dosage: 2 DF, AS NECESSARY
     Route: 065
     Dates: start: 20160129, end: 20160129
  25. LYRICA [Concomitant]
     Active Substance: PREGABALIN
     Dosage: 150 MG, UNK
     Route: 065
     Dates: start: 20160122, end: 20160124
  26. LYRICA [Concomitant]
     Active Substance: PREGABALIN
     Dosage: 300 MG, UNK
     Route: 065
     Dates: start: 20160130, end: 20160216
  27. SERTRALINE [Suspect]
     Active Substance: SERTRALINE HYDROCHLORIDE
     Dosage: 200 MG, UNK
     Route: 065
     Dates: start: 20160218
  28. HOVA DRAGEES [Concomitant]
     Dosage: 2 DF, UNK
     Route: 065
     Dates: start: 20160214
  29. LYRICA [Concomitant]
     Active Substance: PREGABALIN
     Dosage: 250 MG, UNK
     Route: 065
     Dates: start: 20160127, end: 20160129
  30. LYRICA [Concomitant]
     Active Substance: PREGABALIN
     Dosage: 350 MG, UNK
     Route: 065
     Dates: start: 20160217, end: 20160217
  31. SERTRALINE [Suspect]
     Active Substance: SERTRALINE HYDROCHLORIDE
     Dosage: 50 MG, UNK
     Route: 065
     Dates: start: 20160122, end: 20160124
  32. SERTRALINE [Suspect]
     Active Substance: SERTRALINE HYDROCHLORIDE
     Dosage: 100 MG, UNK
     Route: 065
     Dates: start: 20160125, end: 20160129
  33. LYRICA [Concomitant]
     Active Substance: PREGABALIN
     Dosage: 200 MG, UNK
     Route: 065
     Dates: start: 20160125, end: 20160126
  34. LYRICA [Concomitant]
     Active Substance: PREGABALIN
     Dosage: 400 MG, UNK
     Route: 065
     Dates: start: 20160218
  35. MEXALEN [Concomitant]
     Active Substance: ACETAMINOPHEN
     Dosage: 1500 MG, UNK
     Route: 065
     Dates: start: 20160213, end: 20160214
  36. ABILIFY [Suspect]
     Active Substance: ARIPIPRAZOLE
     Dosage: 10 MG, UNK
     Route: 048
  37. MIRTAZAPIN [Suspect]
     Active Substance: MIRTAZAPINE
     Dosage: 30 MG, UNK
     Route: 065
     Dates: start: 20160203, end: 20160207
  38. BRUFEN [Suspect]
     Active Substance: IBUPROFEN
     Dosage: 1200 MG, UNK
     Route: 065
     Dates: start: 20160119
  39. SERTRALINE [Suspect]
     Active Substance: SERTRALINE HYDROCHLORIDE
     Indication: PRODUCT USED FOR UNKNOWN INDICATION
     Dosage: 150 MG, UNK
     Route: 065
     Dates: start: 20160130, end: 20160217
  40. OLEOVIT D3 [Concomitant]
     Active Substance: CHOLECALCIFEROL
     Indication: PRODUCT USED FOR UNKNOWN INDICATION
     Dosage: 28 GTT, QW
     Route: 065

REACTIONS (2)
  - Depressive symptom [Unknown]
  - Hypertension [Recovered/Resolved]

NARRATIVE: CASE EVENT DATE: 20160202
